FAERS Safety Report 8191208-0 (Version None)
Quarter: 2012Q1

REPORT INFORMATION
  Report Type: 
  Country: None (occurrence: None)
  Receive Date: 20120307
  Receipt Date: 20120305
  Transmission Date: 20120608
  Serious: No
  Sender: FDA-Public Use
  Company Number: US-PFIZER INC-2012046517

PATIENT
  Sex: Female
  Weight: 79.365 kg

DRUGS (2)
  1. PROCARDIA XL [Suspect]
     Indication: ARRHYTHMIA
     Dosage: 60 MG DAILY
     Route: 048
  2. PROCARDIA XL [Suspect]
     Indication: HYPERTENSION
     Dosage: 30 MG, 2X/DAY
     Route: 048

REACTIONS (4)
  - HEADACHE [None]
  - DRUG INEFFECTIVE [None]
  - HYPERTENSION [None]
  - DRUG DISPENSING ERROR [None]
